FAERS Safety Report 12841652 (Version 1)
Quarter: 2016Q4

REPORT INFORMATION
  Report Type: Report from Study
  Country: None (occurrence: BR)
  Receive Date: 20161012
  Receipt Date: 20161012
  Transmission Date: 20170207
  Serious: Yes (Hospitalization, Other)
  Sender: FDA-Public Use
  Company Number: BR-ABBVIE-16K-020-1585725-00

PATIENT
  Age: 31 Year
  Sex: Female
  Weight: 54 kg

DRUGS (5)
  1. HUMIRA [Suspect]
     Active Substance: ADALIMUMAB
     Route: 058
  2. HUMIRA [Suspect]
     Active Substance: ADALIMUMAB
     Dosage: MISSED 4 OR 5 INJECTIONS
     Route: 058
  3. DUSPATALIN [Concomitant]
     Active Substance: MEBEVERINE HYDROCHLORIDE
     Indication: PAIN
     Route: 048
  4. HUMIRA [Suspect]
     Active Substance: ADALIMUMAB
     Indication: COLITIS ULCERATIVE
     Dosage: INDUCTION DOSE, WEEK ZERO
     Route: 058
     Dates: start: 20150112, end: 20150112
  5. HUMIRA [Suspect]
     Active Substance: ADALIMUMAB
     Dosage: INDUCTION DOSE, WEEK TWO
     Route: 058
     Dates: start: 201501, end: 201501

REACTIONS (14)
  - Rectal haemorrhage [Recovering/Resolving]
  - Rectal haemorrhage [Recovered/Resolved]
  - Rectal haemorrhage [Unknown]
  - Colitis ulcerative [Unknown]
  - Secretion discharge [Recovered/Resolved]
  - Anxiety [Not Recovered/Not Resolved]
  - Intestinal haemorrhage [Unknown]
  - Rash macular [Not Recovered/Not Resolved]
  - Adverse event [Unknown]
  - Colitis [Unknown]
  - Drug level decreased [Unknown]
  - Skin discolouration [Not Recovered/Not Resolved]
  - Abdominal pain [Not Recovered/Not Resolved]
  - Haematochezia [Not Recovered/Not Resolved]

NARRATIVE: CASE EVENT DATE: 2015
